FAERS Safety Report 15530007 (Version 1)
Quarter: 2018Q4

REPORT INFORMATION
  Report Type: Spontaneous
  Country: FR (occurrence: FR)
  Receive Date: 20181018
  Receipt Date: 20181018
  Transmission Date: 20190205
  Serious: Yes (Hospitalization)
  Sender: FDA-Public Use
  Company Number: FR-ARBOR PHARMACEUTICALS, LLC-FR-2018ARB001067

PATIENT
  Age: 35 Year
  Sex: Female

DRUGS (4)
  1. BEMFOLA [Suspect]
     Active Substance: FOLLITROPIN
     Indication: IN VITRO FERTILISATION
     Dosage: 225 IU, QD
     Route: 058
     Dates: start: 201806, end: 201806
  2. TRIPTODUR [Suspect]
     Active Substance: TRIPTORELIN
     Indication: IN VITRO FERTILISATION
     Dosage: 1 DF, QD
     Route: 030
     Dates: start: 201806
  3. OVITRELLE [Suspect]
     Active Substance: CHORIOGONADOTROPIN ALFA
     Indication: IN VITRO FERTILISATION
     Dosage: 1 DF, 1 TOTAL
     Route: 058
     Dates: start: 20180625
  4. BEMFOLA [Suspect]
     Active Substance: FOLLITROPIN
     Dosage: 150 IU, QD
     Route: 058
     Dates: start: 201806

REACTIONS (3)
  - Dyspnoea [Recovered/Resolved]
  - Ascites [Recovered/Resolved]
  - Ovarian hyperstimulation syndrome [Recovered/Resolved]

NARRATIVE: CASE EVENT DATE: 20180707
